FAERS Safety Report 6149485-3 (Version None)
Quarter: 2009Q2

REPORT INFORMATION
  Report Type: 
  Country: None (occurrence: None)
  Receive Date: 20090409
  Receipt Date: 20090329
  Transmission Date: 20091009
  Serious: Yes (Death, Other)
  Sender: FDA-Public Use
  Company Number: BR-ROCHE-615487

PATIENT
  Sex: Female
  Weight: 60 kg

DRUGS (4)
  1. PEGASYS [Suspect]
     Indication: HEPATITIS C
     Route: 058
     Dates: start: 20080501, end: 20090120
  2. RIBAVIRIN [Concomitant]
     Indication: HEPATITIS C
     Dosage: 2CAP/DAY
     Route: 048
     Dates: end: 20090128
  3. INSULIN [Concomitant]
     Dosage: DOSE: 5U, FREQUENCY: 10U/DAY.
     Dates: end: 20090128
  4. LOSARTAN POTASSIUM [Concomitant]
     Indication: HYPERTENSION
     Dosage: 1 TAB PER DAY
     Dates: end: 20090128

REACTIONS (9)
  - ANAEMIA [None]
  - ASTHENIA [None]
  - FATIGUE [None]
  - GASTRIC HAEMORRHAGE [None]
  - GASTRITIS EROSIVE [None]
  - HAEMATEMESIS [None]
  - MALAISE [None]
  - PLATELET COUNT DECREASED [None]
  - TREMOR [None]
